FAERS Safety Report 24727563 (Version 1)
Quarter: 2024Q4

REPORT INFORMATION
  Report Type: Spontaneous
  Country: US (occurrence: None)
  Receive Date: 20241212
  Receipt Date: 20241212
  Transmission Date: 20250115
  Serious: Yes (Disabling)
  Sender: Public
  Company Number: None

PATIENT
  Age: 28 Year
  Sex: Female
  Weight: 76.95 kg

DRUGS (12)
  1. DULOXETINE [Suspect]
     Active Substance: DULOXETINE
     Indication: Affective disorder
     Dosage: OTHER QUANTITY : 1 TABLET(S);?FREQUENCY : DAILY;?
     Route: 048
     Dates: start: 20240916, end: 20241125
  2. DULOXETINE [Suspect]
     Active Substance: DULOXETINE
     Indication: Mental disorder
  3. DULOXETINE [Suspect]
     Active Substance: DULOXETINE
     Indication: Migraine
  4. OMEPRAZOLE [Concomitant]
     Active Substance: OMEPRAZOLE
  5. METFORMIN [Concomitant]
     Active Substance: METFORMIN HYDROCHLORIDE
  6. PreNatal [pink oval] [Concomitant]
  7. Vitamin D Gummies [Concomitant]
  8. Vitamin C Gummies [Concomitant]
  9. TRAZODONE [Concomitant]
     Active Substance: TRAZODONE HYDROCHLORIDE
  10. HYDROXYZINE HYDROCHLORIDE [Concomitant]
     Active Substance: HYDROXYZINE HYDROCHLORIDE
  11. FERROUS SULFATE [Concomitant]
     Active Substance: FERROUS SULFATE
  12. 7mg nicotine patch [Concomitant]

REACTIONS (5)
  - Weight increased [None]
  - Depression [None]
  - Decreased interest [None]
  - Disturbance in social behaviour [None]
  - Food intolerance [None]

NARRATIVE: CASE EVENT DATE: 20240917
